FAERS Safety Report 5764317-0 (Version None)
Quarter: 2008Q2

REPORT INFORMATION
  Report Type: 
  Country: None (occurrence: None)
  Receive Date: 20080604
  Receipt Date: 20080528
  Transmission Date: 20081010
  Serious: Yes (Hospitalization)
  Sender: FDA-Public Use
  Company Number: 2008SP008566

PATIENT
  Age: 57 Year
  Sex: Female
  Weight: 66.7 kg

DRUGS (12)
  1. TEMODAR [Suspect]
     Indication: HEPATIC NEOPLASM MALIGNANT
     Dosage: 200 MG/M2; QD; PO
     Route: 048
     Dates: start: 20080402, end: 20080406
  2. ABT-888 [Suspect]
     Indication: HEPATIC NEOPLASM MALIGNANT
     Dosage: 160 MG; BID; PO
     Route: 048
     Dates: start: 20080403, end: 20080408
  3. SORAFENIB [Concomitant]
  4. LANSOPRAZOLE [Concomitant]
  5. ASPIRIN [Concomitant]
  6. ONDANSETRON [Concomitant]
  7. METOCLOPRAMIDE [Concomitant]
  8. DIPHENHYDRAMINE HYDROCHLORIDE [Concomitant]
  9. OMEPRAZOLE [Concomitant]
  10. TYLENOL PM [Concomitant]
  11. IMODIUM [Concomitant]
  12. HYDROCODONE [Concomitant]

REACTIONS (17)
  - ABDOMINAL TENDERNESS [None]
  - BLISTER [None]
  - EPISTAXIS [None]
  - FREQUENT BOWEL MOVEMENTS [None]
  - GASTROINTESTINAL HAEMORRHAGE [None]
  - HAEMOGLOBIN DECREASED [None]
  - HEADACHE [None]
  - HEPATIC CANCER METASTATIC [None]
  - INJECTION SITE BRUISING [None]
  - LEUKOPENIA [None]
  - LIVER PALPABLE SUBCOSTAL [None]
  - MELAENA [None]
  - NEUTROPHIL COUNT DECREASED [None]
  - ORAL MUCOSAL PETECHIAE [None]
  - PETECHIAE [None]
  - PYREXIA [None]
  - THROMBOCYTOPENIA [None]
